FAERS Safety Report 4317651-5 (Version None)
Quarter: 2004Q1

REPORT INFORMATION
  Report Type: 
  Country: None (occurrence: None)
  Receive Date: 20040315
  Receipt Date: 20040303
  Transmission Date: 20041129
  Serious: Yes (Other)
  Sender: FDA-Public Use
  Company Number: GB-GLAXOSMITHKLINE-B0325526A

PATIENT
  Age: 37 Year
  Sex: Female

DRUGS (5)
  1. ZYBAN [Suspect]
     Indication: EX-SMOKER
     Dosage: 150MG PER DAY
     Route: 048
     Dates: start: 20040112
  2. MICROVAL [Suspect]
     Route: 065
  3. SERTRALINE HCL [Concomitant]
     Indication: DEPRESSION
     Dosage: 100MG PER DAY
     Route: 048
  4. KAPAKE [Concomitant]
     Indication: ARTHRITIS
     Route: 048
  5. IBUPROFEN [Concomitant]
     Indication: ARTHRITIS
     Route: 061

REACTIONS (1)
  - UNINTENDED PREGNANCY [None]
